FAERS Safety Report 6616110-4 (Version None)
Quarter: 2010Q1

REPORT INFORMATION
  Report Type: 
  Country: None (occurrence: None)
  Receive Date: 20100305
  Receipt Date: 20100301
  Transmission Date: 20100710
  Serious: Yes (Life-Threatening, Hospitalization)
  Sender: FDA-Public Use
  Company Number: US-MERCK-0912USA02138

PATIENT
  Age: 62 Year
  Sex: Male

DRUGS (9)
  1. JANUVIA [Suspect]
     Indication: TYPE 2 DIABETES MELLITUS
     Route: 048
     Dates: start: 20090806, end: 20091214
  2. PRAVASTATIN SODIUM [Concomitant]
     Route: 065
  3. NEXIUM [Concomitant]
     Route: 065
  4. RAMIPRIL [Concomitant]
     Route: 065
  5. BUPROPION HYDROCHLORIDE [Concomitant]
     Route: 065
  6. METFORMIN [Concomitant]
     Route: 065
  7. OMEGA-3 MARINE TRIGLYCERIDES [Concomitant]
     Route: 065
  8. ASPIRIN [Concomitant]
     Route: 065
  9. UBIDECARENONE [Concomitant]
     Route: 065

REACTIONS (2)
  - CHOLECYSTITIS INFECTIVE [None]
  - PANCREATITIS [None]
